FAERS Safety Report 9240921 (Version 1)
Quarter: 2013Q2

REPORT INFORMATION
  Report Type: Spontaneous
  Country: US (occurrence: US)
  Receive Date: 20130418
  Receipt Date: 20130418
  Transmission Date: 20140414
  Serious: Yes (Hospitalization)
  Sender: FDA-Public Use
  Company Number: US-SANOFI-AVENTIS-2013SA006625

PATIENT
  Age: 22 Year
  Sex: Female
  Weight: 96.5 kg

DRUGS (3)
  1. LOVENOX [Suspect]
     Indication: PRODUCT USED FOR UNKNOWN INDICATION
     Route: 065
  2. INVESTIGATIONAL DRUG [Concomitant]
     Indication: OVARIAN CANCER
     Route: 042
     Dates: start: 20130115, end: 20130115
  3. PACLITAXEL [Concomitant]
     Indication: OVARIAN CANCER
     Route: 042
     Dates: start: 20130115, end: 20130115

REACTIONS (1)
  - Abdominal wall haematoma [Recovering/Resolving]
